FAERS Safety Report 9117358 (Version 1)
Quarter: 2013Q1

REPORT INFORMATION
  Report Type: Spontaneous
  Country: US (occurrence: US)
  Receive Date: 20130225
  Receipt Date: 20130225
  Transmission Date: 20140127
  Serious: No
  Sender: FDA-Public Use
  Company Number: US-BIOGENIDEC-2013BI016883

PATIENT
  Age: 14 Year
  Sex: Male

DRUGS (2)
  1. AVONEX [Suspect]
     Indication: MULTIPLE SCLEROSIS
     Route: 030
     Dates: start: 201211, end: 2012
  2. TRILEPTIL [Concomitant]
     Indication: CONVULSION

REACTIONS (3)
  - Hallucination, auditory [Unknown]
  - Speech disorder [Unknown]
  - Inappropriate affect [Unknown]
